FAERS Safety Report 19454746 (Version 1)
Quarter: 2021Q2

REPORT INFORMATION
  Report Type: Spontaneous
  Country: US (occurrence: US)
  Receive Date: 20210623
  Receipt Date: 20210623
  Transmission Date: 20210717
  Serious: Yes (Hospitalization)
  Sender: FDA-Public Use
  Company Number: NVSC2021US140100

PATIENT
  Age: 15 Year
  Sex: Female

DRUGS (1)
  1. BUPROPION. [Suspect]
     Active Substance: BUPROPION
     Indication: PRODUCT USED FOR UNKNOWN INDICATION
     Dosage: 15 G, EXTENDED RELEASE
     Route: 065

REACTIONS (4)
  - Seizure [Unknown]
  - Overdose [Unknown]
  - Tachycardia [Unknown]
  - Cardiac arrest [Unknown]
